FAERS Safety Report 5662488-8 (Version None)
Quarter: 2008Q1

REPORT INFORMATION
  Report Type: 
  Country: None (occurrence: None)
  Receive Date: 20080313
  Receipt Date: 20080303
  Transmission Date: 20080703
  Serious: Yes (Congenital Anomaly)
  Sender: FDA-Public Use
  Company Number: PHBS2008NL02943

PATIENT
  Age: 1 Day
  Sex: Male

DRUGS (1)
  1. IMATINIB [Suspect]
     Dosage: MOTHER'S DOSE: 400 MG/D

REACTIONS (4)
  - BLOOD THYROID STIMULATING HORMONE INCREASED [None]
  - CONGENITAL HYPOTHYROIDISM [None]
  - DRUG EXPOSURE DURING PREGNANCY [None]
  - THYROXINE FREE DECREASED [None]
